FAERS Safety Report 19469323 (Version 1)
Quarter: 2021Q2

REPORT INFORMATION
  Report Type: Spontaneous
  Country: GB (occurrence: GB)
  Receive Date: 20210629
  Receipt Date: 20210629
  Transmission Date: 20210717
  Serious: Yes (Other)
  Sender: FDA-Public Use
  Company Number: GB-AUROBINDO-AUR-APL-2021-027035

PATIENT
  Age: 36 Year
  Sex: Female
  Weight: 78.46 kg

DRUGS (2)
  1. LOFEPRAMINE [Concomitant]
     Active Substance: LOFEPRAMINE
     Indication: ILL-DEFINED DISORDER
     Dosage: UNK
     Route: 065
  2. VENLAFAXINE [Suspect]
     Active Substance: VENLAFAXINE HYDROCHLORIDE
     Indication: DEPRESSION
     Dosage: 70 MILLIGRAM
     Route: 048
     Dates: start: 20210527, end: 20210528

REACTIONS (2)
  - Vomiting projectile [Recovered/Resolved]
  - Adverse drug reaction [Recovered/Resolved]

NARRATIVE: CASE EVENT DATE: 20210527
